FAERS Safety Report 8073734-8 (Version None)
Quarter: 2012Q1

REPORT INFORMATION
  Report Type: 
  Country: None (occurrence: None)
  Receive Date: 20120126
  Receipt Date: 20120116
  Transmission Date: 20120608
  Serious: Yes (Life-Threatening)
  Sender: FDA-Public Use
  Company Number: FR-MERCK-1201USA02638

PATIENT
  Age: 65 Year
  Sex: Male

DRUGS (6)
  1. CUBICIN [Suspect]
     Route: 042
     Dates: start: 20110606, end: 20110617
  2. CANCIDAS [Suspect]
     Route: 042
     Dates: start: 20110606, end: 20110617
  3. PRIMAXIN [Suspect]
     Route: 042
     Dates: start: 20110606, end: 20110617
  4. GENTAMICIN [Concomitant]
     Route: 065
  5. VANCOMYCIN HCL [Suspect]
     Route: 042
     Dates: start: 20110506, end: 20110510
  6. PIPERACILLIN/TAZOBACTAM [Suspect]
     Route: 042
     Dates: start: 20110506, end: 20110606

REACTIONS (2)
  - PROTHROMBIN TIME SHORTENED [None]
  - COAGULATION FACTOR V LEVEL DECREASED [None]
